FAERS Safety Report 8517977 (Version 2)
Quarter: 2012Q4

REPORT INFORMATION
  Report Type: 
  Country: US (occurrence: US)
  Receive Date: 20120417
  Receipt Date: 20120927
  Transmission Date: 20130627
  Serious: Yes (Hospitalization, Other)
  Sender: FDA-Public Use
  Company Number: US-ASTRAZENECA-2011SE22226

PATIENT
  Age: 52 Year
  Sex: Female
  Weight: 59.4 kg

DRUGS (10)
  1. NEXIUM [Suspect]
     Indication: GASTROOESOPHAGEAL REFLUX DISEASE
     Route: 048
  2. SEROQUEL [Suspect]
     Indication: DEPRESSION
     Route: 048
  3. NEURONTIN [Concomitant]
     Route: 048
  4. TRAZADONE [Concomitant]
     Route: 048
  5. MIRTAZAPINE [Concomitant]
     Route: 048
  6. XANAX [Concomitant]
     Indication: NERVOUS SYSTEM DISORDER
     Route: 048
  7. METHOCARBAMOL [Concomitant]
     Indication: MUSCLE SPASMS
     Route: 048
  8. PHENERGAN [Concomitant]
     Indication: VOMITING
     Route: 048
  9. LORTAB [Concomitant]
     Indication: FIBROMYALGIA
     Dosage: 10/325 MG EVERY 4 HOURS
     Route: 048
  10. ANASTROZOLE [Concomitant]
     Indication: NEOPLASM MALIGNANT
     Route: 048
     Dates: start: 20120816

REACTIONS (5)
  - Breast cancer [Unknown]
  - Breast mass [Unknown]
  - Gastrooesophageal reflux disease [Unknown]
  - Device related infection [Unknown]
  - Drug dose omission [Unknown]
